FAERS Safety Report 17556110 (Version 1)
Quarter: 2020Q1

REPORT INFORMATION
  Report Type: Spontaneous
  Country: US (occurrence: US)
  Receive Date: 20200318
  Receipt Date: 20200318
  Transmission Date: 20200409
  Serious: No
  Sender: FDA-Public Use
  Company Number: US-THERAPEUTICSMD-2019TMD05096

PATIENT
  Sex: Female
  Weight: 61.22 kg

DRUGS (3)
  1. IMVEXXY [Suspect]
     Active Substance: ESTRADIOL
     Indication: LIBIDO DISORDER
     Dosage: 4 ?G, 1X/DAY BEFORE BED
     Route: 067
     Dates: start: 2019
  2. IMVEXXY [Suspect]
     Active Substance: ESTRADIOL
     Indication: VULVOVAGINAL DRYNESS
  3. IMVEXXY [Suspect]
     Active Substance: ESTRADIOL
     Indication: VULVOVAGINAL PAIN

REACTIONS (5)
  - Off label use [Not Recovered/Not Resolved]
  - Product residue present [Recovering/Resolving]
  - Malabsorption from administration site [Unknown]
  - Vaginal discharge [Recovering/Resolving]
  - Product use complaint [Not Recovered/Not Resolved]

NARRATIVE: CASE EVENT DATE: 2019
